FAERS Safety Report 24617542 (Version 2)
Quarter: 2025Q1

REPORT INFORMATION
  Report Type: Spontaneous
  Country: US (occurrence: US)
  Receive Date: 20241114
  Receipt Date: 20250120
  Transmission Date: 20250409
  Serious: No
  Sender: Kenvue
  Company Number: US-KENVUE-20241027971

PATIENT
  Sex: Male

DRUGS (2)
  1. WOMENS ROGAINE UNSCENTED [Suspect]
     Active Substance: MINOXIDIL
     Indication: Alopecia
     Dosage: 1 INCH OF A FINGER, ONCE A DAY
     Route: 061
     Dates: start: 20240925, end: 202410
  2. REPATHA [Concomitant]
     Active Substance: EVOLOCUMAB
     Indication: Alopecia
     Route: 065
     Dates: start: 20240925, end: 202410

REACTIONS (4)
  - Alopecia [Not Recovered/Not Resolved]
  - Application site erythema [Unknown]
  - Application site pruritus [Unknown]
  - Off label use [Unknown]

NARRATIVE: CASE EVENT DATE: 20240101
